FAERS Safety Report 4636805-1 (Version None)
Quarter: 2005Q2

REPORT INFORMATION
  Report Type: 
  Country: None (occurrence: None)
  Receive Date: 20050414
  Receipt Date: 20050401
  Transmission Date: 20051028
  Serious: Yes (Other)
  Sender: FDA-Public Use
  Company Number: 163-20785-04100150

PATIENT
  Sex: Male

DRUGS (4)
  1. THALIDOMIDE/PLACEBO (CAPSULES) [Suspect]
     Indication: PROSTATIC INTRAEPITHELIAL NEOPLASIA
     Dosage: 200 MG, DAILY UNTIL PSA PROGRESSION; ORAL (SEE IMAGE)
     Route: 048
     Dates: start: 20010723
  2. THALIDOMIDE/PLACEBO (CAPSULES) [Suspect]
     Indication: PROSTATIC INTRAEPITHELIAL NEOPLASIA
     Dosage: 200 MG, DAILY UNTIL PSA PROGRESSION; ORAL (SEE IMAGE)
     Route: 048
     Dates: start: 20020211
  3. THALIDOMIDE/PLACEBO (CAPSULES) [Suspect]
     Indication: PROSTATIC INTRAEPITHELIAL NEOPLASIA
     Dosage: 200 MG, DAILY UNTIL PSA PROGRESSION; ORAL (SEE IMAGE)
     Route: 048
     Dates: start: 20040419
  4. LEUPROLIDE (L) OR GOSERELIN (G) (UNKNOWN) [Suspect]
     Indication: PROSTATIC INTRAEPITHELIAL NEOPLASIA
     Dosage: (L)7.5 MG IM OR (G)3.6 MG, SC EVERY 28 DAYS FOR 6 CYCLES OR (L)22.5 MG; IM OR (G)10.8 MG; SC EVERY
     Route: 030

REACTIONS (5)
  - BLINDNESS TRANSIENT [None]
  - DIZZINESS [None]
  - HYPOPHOSPHATAEMIA [None]
  - MYALGIA [None]
  - NAUSEA [None]
